FAERS Safety Report 4795797-5 (Version None)
Quarter: 2005Q3

REPORT INFORMATION
  Report Type: 
  Country: None (occurrence: None)
  Receive Date: 20050916
  Receipt Date: 20040920
  Transmission Date: 20060218
  Serious: Yes (Other)
  Sender: FDA-Public Use
  Company Number: US-JNJFOC-20040601656

PATIENT
  Age: 52 Year
  Sex: Female
  Weight: 59.8748 kg

DRUGS (4)
  1. TOPAMAX [Suspect]
     Indication: MIGRAINE
     Dosage: 25 MG, 1 IN 1 DAY, ORAL; 50 MG, 1 IN 1 DAY, ORAL
     Route: 048
     Dates: start: 20040517, end: 20040523
  2. TOPAMAX [Suspect]
     Indication: MIGRAINE
     Dosage: 25 MG, 1 IN 1 DAY, ORAL; 50 MG, 1 IN 1 DAY, ORAL
     Route: 048
     Dates: start: 20040524, end: 20040527
  3. ASPIRIN [Concomitant]
  4. RELPAX (ELETRIPTAN HYDROBROMIDE) [Concomitant]

REACTIONS (1)
  - ANGLE CLOSURE GLAUCOMA [None]
